FAERS Safety Report 17366219 (Version 7)
Quarter: 2022Q4

REPORT INFORMATION
  Report Type: Spontaneous
  Country: US (occurrence: US)
  Receive Date: 20200204
  Receipt Date: 20221222
  Transmission Date: 20230113
  Serious: No
  Sender: FDA-Public Use
  Company Number: US-PFIZER INC-2020042410

PATIENT
  Age: 48 Year
  Sex: Female
  Weight: 50 kg

DRUGS (2)
  1. PRISTIQ EXTENDED-RELEASE [Suspect]
     Active Substance: DESVENLAFAXINE SUCCINATE
     Indication: Bipolar I disorder
     Dosage: 100 MG, 1X/DAY
     Route: 048
  2. PRISTIQ EXTENDED-RELEASE [Suspect]
     Active Substance: DESVENLAFAXINE SUCCINATE
     Dosage: 50 MG, 2X/DAY (TAKE 2 TABLETS ONCE A DAY)

REACTIONS (11)
  - Drug ineffective [Unknown]
  - Drug intolerance [Unknown]
  - Hypoaesthesia [Unknown]
  - Depressed mood [Unknown]
  - Feeling abnormal [Unknown]
  - Withdrawal syndrome [Unknown]
  - Condition aggravated [Unknown]
  - Depression [Unknown]
  - Anxiety [Unknown]
  - Hypersensitivity [Unknown]
  - Illness [Unknown]
